FAERS Safety Report 9026125 (Version 2)
Quarter: 2013Q1

REPORT INFORMATION
  Report Type: Spontaneous
  Country: US (occurrence: None)
  Receive Date: 20130108
  Receipt Date: 20130122
  Transmission Date: 20140127
  Serious: Yes (Other)
  Sender: FDA-Public Use
  Company Number: 2012P1068342

PATIENT
  Age: 57 Year
  Sex: Male
  Weight: 88 kg

DRUGS (18)
  1. INFUMORPH [Suspect]
     Indication: PAIN
     Dates: start: 20121127
  2. INFUMORPH [Suspect]
     Indication: POST LAMINECTOMY SYNDROME
     Dates: start: 20121127
  3. CLONIDINE [Suspect]
     Indication: PAIN
     Dates: start: 20121127
  4. CLONIDINE [Suspect]
     Indication: POST LAMINECTOMY SYNDROME
     Dates: start: 20121127
  5. AMITRIPTYLINE 100 MG [Concomitant]
  6. AXIRON 30 MG/ ACTUATION [Concomitant]
  7. TRANSDERM SOLUTION IN METERED PUMP [Concomitant]
  8. BACLOFEN 10 MG TABLETS [Concomitant]
  9. CATAPRESS-TTS-30.3 MG/ 24 HR TRANSDERM PATCH [Concomitant]
  10. CELEBREX [Concomitant]
  11. DILAUDID [Concomitant]
  12. FENTANYL [Concomitant]
  13. GLYCOPYRROLATE [Concomitant]
  14. KETOROLAC [Concomitant]
  15. LYRICA [Concomitant]
  16. METOPROLOL TARTRATE [Concomitant]
  17. MORPHINE [Concomitant]
  18. SENOKOT [Concomitant]

REACTIONS (2)
  - Drug withdrawal syndrome [None]
  - Device breakage [None]
